FAERS Safety Report 7344688-4 (Version None)
Quarter: 2011Q1

REPORT INFORMATION
  Report Type: 
  Country: None (occurrence: None)
  Receive Date: 20110310
  Receipt Date: 20110304
  Transmission Date: 20110831
  Serious: Yes (Hospitalization)
  Sender: FDA-Public Use
  Company Number: DE-MERCK-1102DEU00032

PATIENT
  Age: 60 Year
  Sex: Male
  Weight: 112 kg

DRUGS (5)
  1. METFORMIN [Concomitant]
     Route: 048
     Dates: start: 20110203
  2. PANTOPRAZOLE SODIUM [Concomitant]
     Indication: GASTROOESOPHAGEAL REFLUX DISEASE
     Route: 048
  3. TAMSULOSIN HYDROCHLORIDE [Concomitant]
     Indication: BENIGN PROSTATIC HYPERPLASIA
     Route: 065
  4. JANUMET [Suspect]
     Indication: TYPE 2 DIABETES MELLITUS
     Route: 048
     Dates: start: 20090101, end: 20110121
  5. METFORMIN [Concomitant]
     Route: 048
     Dates: end: 20110202

REACTIONS (3)
  - CONVULSION [None]
  - OVERDOSE [None]
  - HYPOGLYCAEMIA [None]
